FAERS Safety Report 9178220 (Version 4)
Quarter: 2013Q2

REPORT INFORMATION
  Report Type: Spontaneous
  Country: US (occurrence: US)
  Receive Date: 20130321
  Receipt Date: 20130424
  Transmission Date: 20140414
  Serious: No
  Sender: FDA-Public Use
  Company Number: US-PFIZER INC-2013091672

PATIENT
  Age: 63 Year
  Sex: Male
  Weight: 79 kg

DRUGS (5)
  1. LYRICA [Suspect]
     Indication: SPINAL PAIN
     Dosage: 50 MG, AS NEEDED
     Route: 048
     Dates: start: 2010, end: 2010
  2. LYRICA [Suspect]
     Indication: PAIN
     Dosage: 50 MG, 4X/DAY
     Route: 048
     Dates: start: 2010
  3. LYRICA [Suspect]
     Dosage: 75 MG, 4X/DAY
     Route: 048
     Dates: end: 201304
  4. ROXICODONE [Concomitant]
     Indication: PAIN
     Dosage: 30 MG, 5X/DAY
  5. PROZAC [Concomitant]
     Dosage: UNKNOWN DOSE DAILY

REACTIONS (5)
  - Oedema peripheral [Recovering/Resolving]
  - Swelling face [Recovering/Resolving]
  - Joint swelling [Unknown]
  - Swelling [Unknown]
  - Drug intolerance [Unknown]
